FAERS Safety Report 4745010-X (Version None)
Quarter: 2005Q3

REPORT INFORMATION
  Report Type: 
  Country: None (occurrence: None)
  Receive Date: 20050811
  Receipt Date: 20050804
  Transmission Date: 20060218
  Serious: Yes (Hospitalization, Other)
  Sender: FDA-Public Use
  Company Number: FRWYE883004AUG05

PATIENT
  Age: 19 Year
  Sex: Female

DRUGS (2)
  1. TAZOCILLINE (PIPERACILLIN/TAZOBACTAM, INJECTION) [Suspect]
     Indication: EAR INFECTION
     Dosage: INTRAVENOUS
     Route: 042
     Dates: start: 20050606, end: 20050616
  2. AMIKIN [Concomitant]

REACTIONS (12)
  - ALANINE AMINOTRANSFERASE INCREASED [None]
  - ASPARTATE AMINOTRANSFERASE INCREASED [None]
  - BLOOD LACTATE DEHYDROGENASE INCREASED [None]
  - BLOOD TRIGLYCERIDES INCREASED [None]
  - DRUG HYPERSENSITIVITY [None]
  - HISTIOCYTOSIS HAEMATOPHAGIC [None]
  - HYPERTHERMIA [None]
  - LYMPHOCYTE MORPHOLOGY ABNORMAL [None]
  - PRURITUS [None]
  - RASH [None]
  - SERUM FERRITIN INCREASED [None]
  - THROMBOCYTOPENIA [None]
